FAERS Safety Report 4618596-3 (Version None)
Quarter: 2005Q1

REPORT INFORMATION
  Report Type: 
  Country: None (occurrence: None)
  Receive Date: 20050324
  Receipt Date: 20050314
  Transmission Date: 20050727
  Serious: Yes (Hospitalization)
  Sender: FDA-Public Use
  Company Number: US014883

PATIENT
  Age: 20 Year
  Sex: Male
  Weight: 85 kg

DRUGS (4)
  1. GABITRIL [Suspect]
     Indication: BIPOLAR DISORDER
     Dosage: 2 MG  BID ORAL
     Route: 048
     Dates: start: 20041201, end: 20050309
  2. ATIVAN [Concomitant]
  3. LITHIUM CR [Concomitant]
  4. SEROQUEL [Concomitant]

REACTIONS (5)
  - BRAIN OEDEMA [None]
  - DRUG INEFFECTIVE [None]
  - DRUG SCREEN POSITIVE [None]
  - NERVOUS SYSTEM DISORDER [None]
  - STATUS EPILEPTICUS [None]
